FAERS Safety Report 6653803-7 (Version None)
Quarter: 2010Q1

REPORT INFORMATION
  Report Type: 
  Country: None (occurrence: None)
  Receive Date: 20100326
  Receipt Date: 20100319
  Transmission Date: 20100710
  Serious: Yes (Hospitalization)
  Sender: FDA-Public Use
  Company Number: A0851880A

PATIENT
  Sex: Female
  Weight: 18.3 kg

DRUGS (1)
  1. SERETIDE [Suspect]
     Indication: ASTHMA
     Dosage: 2PUFF TWICE PER DAY
     Route: 065
     Dates: start: 20070101

REACTIONS (5)
  - ASTHMATIC CRISIS [None]
  - DRUG INEFFECTIVE [None]
  - OVERDOSE [None]
  - PNEUMONIA [None]
  - PRODUCT QUALITY ISSUE [None]
